FAERS Safety Report 23564543 (Version 1)
Quarter: 2024Q1

REPORT INFORMATION
  Report Type: Spontaneous
  Country: KR (occurrence: KR)
  Receive Date: 20240226
  Receipt Date: 20240226
  Transmission Date: 20240409
  Serious: Yes (Hospitalization, Other)
  Sender: FDA-Public Use
  Company Number: KR-SA-2024SA062652

PATIENT
  Age: 47 Year
  Sex: Male
  Weight: 69.05 kg

DRUGS (11)
  1. AFLIBERCEPT [Suspect]
     Active Substance: AFLIBERCEPT
     Indication: Rectal cancer
     Dosage: 284 MG
     Route: 065
     Dates: start: 20210624, end: 20210624
  2. AFLIBERCEPT [Suspect]
     Active Substance: AFLIBERCEPT
     Dosage: 284 MG
     Route: 065
     Dates: start: 20210513, end: 20210513
  3. IRINOTECAN HYDROCHLORIDE [Suspect]
     Active Substance: IRINOTECAN HYDROCHLORIDE
     Indication: Rectal cancer
     Dosage: 325 MG
     Route: 065
     Dates: start: 20210624, end: 20210624
  4. IRINOTECAN HYDROCHLORIDE [Suspect]
     Active Substance: IRINOTECAN HYDROCHLORIDE
     Dosage: 325 UNK
     Route: 065
     Dates: start: 20210513, end: 20210513
  5. FLUOROURACIL [Suspect]
     Active Substance: FLUOROURACIL
     Indication: Rectal cancer
     Dosage: 720 MG
     Route: 065
     Dates: start: 20210624, end: 20210624
  6. FLUOROURACIL [Suspect]
     Active Substance: FLUOROURACIL
     Dosage: 4340 MG
     Route: 065
     Dates: start: 20210625, end: 20210625
  7. FLUOROURACIL [Suspect]
     Active Substance: FLUOROURACIL
     Dosage: 720 MG
     Route: 065
     Dates: start: 20210513
  8. FLUOROURACIL [Suspect]
     Active Substance: FLUOROURACIL
     Dosage: 4340 MG
     Route: 065
     Dates: end: 20210513
  9. ACETAMINOPHEN\TRAMADOL HYDROCHLORIDE [Concomitant]
     Active Substance: ACETAMINOPHEN\TRAMADOL HYDROCHLORIDE
     Indication: Abdominal pain
     Dosage: 325 MG
     Route: 065
     Dates: start: 20210708, end: 20210709
  10. TRAMADOL HYDROCHLORIDE [Concomitant]
     Active Substance: TRAMADOL HYDROCHLORIDE
     Indication: Abdominal pain
     Dosage: 50 MG, QD
     Route: 065
     Dates: start: 20210720, end: 20210720
  11. KETOROLAC TROMETHAMINE [Concomitant]
     Active Substance: KETOROLAC TROMETHAMINE
     Indication: Abdominal pain
     Dosage: 30 MG
     Route: 065
     Dates: start: 20210720, end: 20210720

REACTIONS (3)
  - Pleural effusion [Recovered/Resolved]
  - Ileus [Recovering/Resolving]
  - Malignant neoplasm progression [Unknown]

NARRATIVE: CASE EVENT DATE: 20210708
